FAERS Safety Report 6369329-4 (Version None)
Quarter: 2009Q3

REPORT INFORMATION
  Report Type: 
  Country: None (occurrence: None)
  Receive Date: 20090916
  Receipt Date: 20090909
  Transmission Date: 20100115
  Serious: Yes (Other)
  Sender: FDA-Public Use
  Company Number: 2009JP005564

PATIENT
  Age: 64 Year
  Sex: Female

DRUGS (4)
  1. VESICARE [Suspect]
     Indication: HYPERTONIC BLADDER
     Dosage: 5 MG, D, ORAL, 2.5 MG, D, ORAL
     Route: 048
     Dates: end: 20090821
  2. VESICARE [Suspect]
     Indication: HYPERTONIC BLADDER
     Dosage: 5 MG, D, ORAL, 2.5 MG, D, ORAL
     Route: 048
     Dates: start: 20090822, end: 20090903
  3. MEIACT (CEFDITOREN PIVOXIL) [Concomitant]
  4. MUCODYNE (CARBOCISTEINE) [Concomitant]

REACTIONS (2)
  - COLD SWEAT [None]
  - PALPITATIONS [None]
